FAERS Safety Report 11044003 (Version 1)
Quarter: 2015Q2

REPORT INFORMATION
  Report Type: Spontaneous
  Country: US (occurrence: US)
  Receive Date: 20150417
  Receipt Date: 20150417
  Transmission Date: 20150821
  Serious: Yes (Hospitalization)
  Sender: FDA-Public Use
  Company Number: US-NOVOPROD-445486

PATIENT
  Sex: Male

DRUGS (2)
  1. NOVOLOG [Suspect]
     Active Substance: INSULIN ASPART
     Indication: TYPE 2 DIABETES MELLITUS
     Dosage: 20 UNITS THREE TIMES DAILY BEFORE MEALS
     Route: 058
     Dates: start: 20150318, end: 201504
  2. NOVOLOG [Suspect]
     Active Substance: INSULIN ASPART
     Dosage: 20 UNITS THREE TIMES DAILY BEFORE MEALS
     Route: 058
     Dates: start: 20150409

REACTIONS (3)
  - Pneumothorax [Recovered/Resolved]
  - Staphylococcal sepsis [Recovered/Resolved]
  - Expired product administered [Recovered/Resolved]

NARRATIVE: CASE EVENT DATE: 20150323
